FAERS Safety Report 5423580-6 (Version None)
Quarter: 2007Q3

REPORT INFORMATION
  Report Type: 
  Country: None (occurrence: None)
  Receive Date: 20070821
  Receipt Date: 20070821
  Transmission Date: 20080115
  Serious: Yes (Hospitalization)
  Sender: FDA-Public Use
  Company Number: None

PATIENT
  Age: 27 Year
  Sex: Female

DRUGS (1)
  1. ORTHO EVRA [Suspect]

REACTIONS (6)
  - CEREBELLAR INFARCTION [None]
  - DEMYELINATION [None]
  - DIZZINESS [None]
  - HYPOAESTHESIA FACIAL [None]
  - ISCHAEMIA [None]
  - VISUAL DISTURBANCE [None]
